FAERS Safety Report 4469259-9 (Version None)
Quarter: 2004Q4

REPORT INFORMATION
  Report Type: 
  Country: None (occurrence: None)
  Receive Date: 20041005
  Receipt Date: 20040901
  Transmission Date: 20050328
  Serious: Yes (Other)
  Sender: FDA-Public Use
  Company Number: 1559

PATIENT

DRUGS (1)
  1. FAMOTIDINE [Suspect]
     Dosage: 20 MG IV Q12H

REACTIONS (2)
  - MEDICATION ERROR [None]
  - PHARMACEUTICAL PRODUCT COMPLAINT [None]
